FAERS Safety Report 13744968 (Version 2)
Quarter: 2018Q4

REPORT INFORMATION
  Report Type: Spontaneous
  Country: US (occurrence: US)
  Receive Date: 20170712
  Receipt Date: 20181017
  Transmission Date: 20190204
  Serious: No
  Sender: FDA-Public Use
  Company Number: US-PFIZER INC-2017297078

PATIENT
  Age: 59 Year
  Sex: Female

DRUGS (4)
  1. METHOTREXATE SODIUM. [Suspect]
     Active Substance: METHOTREXATE SODIUM
     Dosage: 10 MG, WEEKLY (Q WK)
     Dates: start: 201702, end: 20170416
  2. METHOTREXATE SODIUM. [Suspect]
     Active Substance: METHOTREXATE SODIUM
     Dosage: 15 MG, WEEKLY (METHOTREXATE 2.5 MG TABLET 6 TAB(S) ORALLY ONCE A WEEK)
     Route: 048
     Dates: start: 20170417, end: 20170425
  3. METHOTREXATE SODIUM. [Suspect]
     Active Substance: METHOTREXATE SODIUM
     Indication: RHEUMATOID ARTHRITIS
     Dosage: UNK
     Dates: start: 201701
  4. METHOTREXATE SODIUM. [Suspect]
     Active Substance: METHOTREXATE SODIUM
     Dosage: UNK
     Dates: end: 201705

REACTIONS (4)
  - Drug ineffective [Unknown]
  - Rash [Recovered/Resolved]
  - Drug hypersensitivity [Unknown]
  - Liver function test increased [Unknown]

NARRATIVE: CASE EVENT DATE: 201703
